FAERS Safety Report 9350180 (Version 2)
Quarter: 2013Q3

REPORT INFORMATION
  Report Type: Report from Study
  Country: JP (occurrence: JP)
  Receive Date: 20130617
  Receipt Date: 20130806
  Transmission Date: 20140515
  Serious: Yes (Hospitalization, Other)
  Sender: FDA-Public Use
  Company Number: JP-ROCHE-1236563

PATIENT
  Age: 84 Year
  Sex: Male
  Weight: 52 kg

DRUGS (14)
  1. OMALIZUMAB [Suspect]
     Indication: ASTHMA
     Route: 058
     Dates: start: 20121130
  2. OMALIZUMAB [Suspect]
     Route: 058
     Dates: start: 20121228
  3. PRIVINA [Concomitant]
     Route: 065
     Dates: start: 20090703
  4. ALVESCO [Concomitant]
     Route: 065
     Dates: start: 20091130
  5. MEPTIN [Concomitant]
     Route: 065
     Dates: start: 20000420
  6. HOKUNALIN [Concomitant]
     Route: 065
     Dates: start: 20031225
  7. KIPRES [Concomitant]
     Route: 065
     Dates: start: 20070525
  8. UNIPHYLLIN [Concomitant]
     Route: 065
     Dates: start: 20070316
  9. PREDNISOLONE [Concomitant]
     Route: 065
     Dates: start: 20060915
  10. MUCODYNE [Concomitant]
     Route: 065
     Dates: start: 20020516
  11. GASTER (JAPAN) [Concomitant]
     Route: 065
     Dates: start: 20080711
  12. GASMOTIN [Concomitant]
     Route: 065
     Dates: start: 20080711
  13. MYSLEE [Concomitant]
     Route: 065
     Dates: start: 20080215
  14. ALLEGRA [Concomitant]
     Route: 065
     Dates: start: 20080919

REACTIONS (2)
  - Humerus fracture [Recovered/Resolved]
  - Fall [Unknown]
